FAERS Safety Report 4925280-5 (Version None)
Quarter: 2006Q1

REPORT INFORMATION
  Report Type: 
  Country: None (occurrence: None)
  Receive Date: 20060228
  Receipt Date: 20060223
  Transmission Date: 20060701
  Serious: Yes (Hospitalization)
  Sender: FDA-Public Use
  Company Number: US-GLAXOSMITHKLINE-A0595160A

PATIENT
  Sex: Female

DRUGS (3)
  1. PAXIL [Suspect]
     Indication: DEPRESSIVE SYMPTOM
     Route: 048
     Dates: start: 20000701
  2. WELLBUTRIN SR [Concomitant]
     Indication: DISTURBANCE IN ATTENTION
     Dosage: 150MG TWICE PER DAY
     Route: 048
  3. NORTRIPTYLINE HCL [Concomitant]
     Indication: HEADACHE
     Dosage: 50MG PER DAY

REACTIONS (9)
  - ADVERSE EVENT [None]
  - AGITATION [None]
  - DRUG INEFFECTIVE [None]
  - FATIGUE [None]
  - INSOMNIA [None]
  - INTENTIONAL SELF-INJURY [None]
  - SOMNOLENCE [None]
  - SUICIDAL IDEATION [None]
  - WEIGHT INCREASED [None]
